FAERS Safety Report 5155787-X (Version None)
Quarter: 2006Q4

REPORT INFORMATION
  Report Type: 
  Country: None (occurrence: None)
  Receive Date: 20061113
  Receipt Date: 20061103
  Transmission Date: 20070319
  Serious: Yes (Death, Life-Threatening, Hospitalization, Other)
  Sender: FDA-Public Use
  Company Number: 2006-01762

PATIENT
  Age: 58 Year
  Sex: Male

DRUGS (6)
  1. VELCADE [Suspect]
     Indication: MULTIPLE MYELOMA
     Dosage: 1.00 MG/M2, INTRAVENOUS
     Route: 042
     Dates: start: 20060703, end: 20060101
  2. REVLIMID [Suspect]
     Indication: MULTIPLE MYELOMA
     Dosage: 10.00 MG, ORAL
     Route: 048
     Dates: start: 20060703, end: 20060101
  3. DECADRON [Suspect]
     Indication: MULTIPLE MYELOMA
     Dosage: 12.00 MG,
     Dates: start: 20060703, end: 20060101
  4. ASPIRIN [Concomitant]
  5. ZOSYN [Concomitant]
  6. TEGASEROD (TEGASEROD) [Concomitant]

REACTIONS (28)
  - AMMONIA INCREASED [None]
  - ANOREXIA [None]
  - BONE MARROW FAILURE [None]
  - BONE PAIN [None]
  - COLITIS ISCHAEMIC [None]
  - CYTOMEGALOVIRUS INFECTION [None]
  - DEHYDRATION [None]
  - DELIRIUM [None]
  - DISEASE PROGRESSION [None]
  - DIZZINESS [None]
  - DRUG INTOLERANCE [None]
  - FAILURE TO THRIVE [None]
  - GASTRIC DISORDER [None]
  - HAEMOGLOBIN DECREASED [None]
  - HYPOGAMMAGLOBULINAEMIA [None]
  - LARGE INTESTINAL HAEMORRHAGE [None]
  - LETHARGY [None]
  - MASTOIDITIS [None]
  - NAUSEA [None]
  - OTITIS MEDIA [None]
  - PARESIS [None]
  - PSYCHOTIC DISORDER [None]
  - PYREXIA [None]
  - RESPIRATORY SYNCYTIAL VIRUS INFECTION [None]
  - RESPIRATORY TRACT INFECTION FUNGAL [None]
  - SEPSIS [None]
  - SYNCOPE [None]
  - VOMITING [None]
